FAERS Safety Report 4872830-3 (Version None)
Quarter: 2005Q4

REPORT INFORMATION
  Report Type: 
  Country: None (occurrence: None)
  Receive Date: 20051201
  Receipt Date: 20050712
  Transmission Date: 20060501
  Serious: No
  Sender: FDA-Public Use
  Company Number: 2005PV000350

PATIENT
  Age: 44 Year
  Sex: Female
  Weight: 87.9978 kg

DRUGS (9)
  1. BYETTA [Suspect]
     Indication: DIABETES MELLITUS NON-INSULIN-DEPENDENT
     Dosage: 5 MCG;BID;SC
     Route: 058
     Dates: start: 20050622
  2. NOVOLIN [Concomitant]
  3. METFORMIN [Concomitant]
  4. GLIPIZIDE [Concomitant]
  5. TRAMADOL HCL [Concomitant]
  6. BACLOFEN [Concomitant]
  7. CYMBALTA [Concomitant]
  8. TRAZODONE [Concomitant]
  9. LIPITOR [Concomitant]

REACTIONS (2)
  - NAUSEA [None]
  - WEIGHT DECREASED [None]
